FAERS Safety Report 15720495 (Version 1)
Quarter: 2018Q4

REPORT INFORMATION
  Report Type: Spontaneous
  Country: US (occurrence: US)
  Receive Date: 20181213
  Receipt Date: 20181213
  Transmission Date: 20190205
  Serious: Yes (Hospitalization)
  Sender: FDA-Public Use
  Company Number: US-NOVOPROD-637004

PATIENT
  Age: 68 Year
  Sex: Female
  Weight: 113.38 kg

DRUGS (1)
  1. VICTOZA [Suspect]
     Active Substance: LIRAGLUTIDE
     Indication: DIABETES MELLITUS
     Dosage: UNK
     Route: 058
     Dates: start: 20160101

REACTIONS (2)
  - Blister [Recovering/Resolving]
  - Uterine cancer [Recovering/Resolving]

NARRATIVE: CASE EVENT DATE: 20180201
